FAERS Safety Report 8441465-8 (Version None)
Quarter: 2012Q2

REPORT INFORMATION
  Report Type: 
  Country: None (occurrence: None)
  Receive Date: 20120615
  Receipt Date: 20120605
  Transmission Date: 20120825
  Serious: Yes (Hospitalization, Other)
  Sender: FDA-Public Use
  Company Number: US-BAYER-2012-055535

PATIENT
  Age: 49 Year
  Sex: Female
  Weight: 74.83 kg

DRUGS (13)
  1. YAZ [Suspect]
     Indication: MENORRHAGIA
  2. YASMIN [Suspect]
     Indication: CONTRACEPTION
     Dosage: UNK
     Dates: start: 20060710
  3. YASMIN [Suspect]
     Indication: HEADACHE
  4. DEPAKOTE [Concomitant]
  5. DROSPIRENONE AND ETHINYL ESTRADIOL [Suspect]
     Indication: HEADACHE
  6. DROSPIRENONE AND ETHINYL ESTRADIOL [Suspect]
     Indication: MENORRHAGIA
  7. MULTI-VITAMIN [Concomitant]
     Dosage: 1 DAILY
     Route: 048
  8. YASMIN [Suspect]
     Indication: MENORRHAGIA
  9. DROSPIRENONE AND ETHINYL ESTRADIOL [Suspect]
     Indication: CONTRACEPTION
     Dosage: UNK
     Dates: start: 20081113, end: 20100404
  10. DEPAKOTE [Concomitant]
  11. YAZ [Suspect]
     Indication: CONTRACEPTION
     Dosage: UNK
     Dates: start: 20061018, end: 20080829
  12. CALCIUM VIT D [Concomitant]
     Dosage: 2 DAILY
     Route: 048
  13. YAZ [Suspect]
     Indication: HEADACHE

REACTIONS (9)
  - PULMONARY EMBOLISM [None]
  - DEEP VEIN THROMBOSIS [None]
  - INJURY [None]
  - PARTIAL SEIZURES [None]
  - CONVULSION [None]
  - CEREBROVASCULAR ACCIDENT [None]
  - CEREBRAL HAEMORRHAGE [None]
  - DIZZINESS [None]
  - PAIN [None]
